FAERS Safety Report 4886993-7 (Version None)
Quarter: 2006Q1

REPORT INFORMATION
  Report Type: 
  Country: None (occurrence: None)
  Receive Date: 20060120
  Receipt Date: 20051005
  Transmission Date: 20060701
  Serious: Yes (Death, Hospitalization)
  Sender: FDA-Public Use
  Company Number: US-MERCK-0510USA05573

PATIENT
  Age: 80 Year
  Sex: Female
  Weight: 52 kg

DRUGS (6)
  1. VIOXX [Suspect]
     Indication: ARTHRALGIA
     Route: 048
     Dates: start: 19990924, end: 20010704
  2. ARICEPT [Concomitant]
     Route: 065
  3. RISPERDAL [Concomitant]
     Route: 065
  4. REMERON [Concomitant]
     Route: 065
  5. AVELOX [Concomitant]
     Route: 065
  6. LANOXIN [Concomitant]
     Route: 065

REACTIONS (3)
  - CARDIOVASCULAR DISORDER [None]
  - CEREBROVASCULAR ACCIDENT [None]
  - DEMENTIA ALZHEIMER'S TYPE [None]
